FAERS Safety Report 16870018 (Version 2)
Quarter: 2019Q4

REPORT INFORMATION
  Report Type: Report from Study
  Country: US (occurrence: US)
  Receive Date: 20190930
  Receipt Date: 20191104
  Transmission Date: 20200122
  Serious: Yes (Life-Threatening, Hospitalization)
  Sender: FDA-Public Use
  Company Number: US-BAYER-2019-176927

PATIENT
  Age: 61 Year
  Sex: Male
  Weight: 92.8 kg

DRUGS (16)
  1. COPANLISIB. [Suspect]
     Active Substance: COPANLISIB
     Indication: GLIOBLASTOMA MULTIFORME
     Dosage: CYCLE 28 DAYS: 60 MG OVER 60 MINUTES ON DAYS 1,8 AND 15
     Route: 042
     Dates: start: 20190619
  2. HYDROCODONE [Concomitant]
     Active Substance: HYDROCODONE
  3. MARINOL [Concomitant]
     Active Substance: DRONABINOL
  4. XARELTO [Concomitant]
     Active Substance: RIVAROXABAN
  5. FAMOTIDINE. [Concomitant]
     Active Substance: FAMOTIDINE
  6. NYSTATIN. [Concomitant]
     Active Substance: NYSTATIN
  7. CITALOPRAM [Concomitant]
     Active Substance: CITALOPRAM HYDROBROMIDE
  8. CLONAZEPAM. [Concomitant]
     Active Substance: CLONAZEPAM
  9. CLONIDINE. [Concomitant]
     Active Substance: CLONIDINE
  10. GABAPENTIN. [Concomitant]
     Active Substance: GABAPENTIN
  11. LEVETIRACETAM. [Concomitant]
     Active Substance: LEVETIRACETAM
  12. XARELTO [Concomitant]
     Active Substance: RIVAROXABAN
  13. AMLODIPINE [Concomitant]
     Active Substance: AMLODIPINE BESYLATE
  14. PROCHLORPERAZINE. [Concomitant]
     Active Substance: PROCHLORPERAZINE
  15. COPANLISIB. [Suspect]
     Active Substance: COPANLISIB
     Indication: GLIOBLASTOMA MULTIFORME
     Dosage: CYCLE 28 DAYS: 60 MG OVER 60 MINUTES ON DAYS 1,8 AND 15
     Route: 042
     Dates: start: 20190522
  16. ARMODAFINIL. [Concomitant]
     Active Substance: ARMODAFINIL

REACTIONS (3)
  - Hypertension [Recovered/Resolved]
  - Brain oedema [None]
  - Headache [None]

NARRATIVE: CASE EVENT DATE: 20190522
